FAERS Safety Report 11980925 (Version 1)
Quarter: 2016Q1

REPORT INFORMATION
  Report Type: Report from Study
  Country: US (occurrence: US)
  Receive Date: 20160129
  Receipt Date: 20160129
  Transmission Date: 20160526
  Serious: Yes (Other)
  Sender: FDA-Public Use
  Company Number: US-GILEAD-2016-0194728

PATIENT
  Age: 67 Year
  Sex: Female

DRUGS (1)
  1. RANOLAZINE [Suspect]
     Active Substance: RANOLAZINE
     Indication: ANGINA PECTORIS
     Dosage: 1000 MG, UNK
     Route: 048

REACTIONS (10)
  - Stent placement [Unknown]
  - Speech disorder [Unknown]
  - Multiple sclerosis [Unknown]
  - Diabetes mellitus [Unknown]
  - Emphysema [Unknown]
  - Hypertension [Unknown]
  - Coronary arterial stent insertion [Unknown]
  - Malaise [Unknown]
  - Chronic obstructive pulmonary disease [Unknown]
  - Sinusitis [Unknown]
